FAERS Safety Report 4620647-7 (Version None)
Quarter: 2005Q1

REPORT INFORMATION
  Report Type: 
  Country: None (occurrence: None)
  Receive Date: 20050325
  Receipt Date: 20050309
  Transmission Date: 20050727
  Serious: Yes (Death)
  Sender: FDA-Public Use
  Company Number: 2005S1001103

PATIENT
  Age: 48 Year
  Sex: Male

DRUGS (8)
  1. CLOZAPINE [Suspect]
     Indication: SCHIZOPHRENIA
     Dosage: SEE IMAGE, PO
     Route: 048
  2. GLYCOPYRRONIUM BROMIDE [Concomitant]
  3. RISPERIDONE [Concomitant]
  4. NICOTINE [Concomitant]
  5. LORAZEPAM [Concomitant]
  6. SENNA [Concomitant]
  7. PARACETAMOL [Concomitant]
  8. PSEUDOEPHEDRINE HYDROCHLORIDE [Concomitant]

REACTIONS (1)
  - LARYNGEAL CANCER [None]
